FAERS Safety Report 4543883-7 (Version None)
Quarter: 2004Q4

REPORT INFORMATION
  Report Type: 
  Country: None (occurrence: None)
  Receive Date: 20041229
  Receipt Date: 20041229
  Transmission Date: 20050328
  Serious: Yes (Other)
  Sender: FDA-Public Use
  Company Number: None

PATIENT
  Age: 46 Year
  Sex: Male

DRUGS (2)
  1. LIDOCAINE [Suspect]
     Dosage: SPINAL ANESTHESIA
  2. EPINEPHRINE [Suspect]

REACTIONS (2)
  - BUTTOCK PAIN [None]
  - PAIN IN EXTREMITY [None]
